FAERS Safety Report 11283088 (Version 1)
Quarter: 2015Q3

REPORT INFORMATION
  Report Type: Spontaneous
  Country: US (occurrence: None)
  Receive Date: 20150717
  Receipt Date: 20150717
  Transmission Date: 20151125
  Serious: Yes (Life-Threatening, Hospitalization, Disabling, Other)
  Sender: FDA-Public Use
  Company Number: None

PATIENT
  Age: 39 Year
  Sex: Female
  Weight: 90.72 kg

DRUGS (10)
  1. MUPIROCIN. [Concomitant]
     Active Substance: MUPIROCIN
  2. AMOXICILLIN AND CLAVULANATE POTASSIUM [Concomitant]
     Active Substance: AMOXICILLIN\CLAVULANATE POTASSIUM
  3. METOPROLOL [Concomitant]
     Active Substance: METOPROLOL
  4. METOPROLO TARTRATE [Concomitant]
  5. HYDROXYZINE [Concomitant]
     Active Substance: HYDROXYZINE\HYDROXYZINE HYDROCHLORIDE
  6. ASPIRIN 81 [Concomitant]
  7. AZELASTINE [Concomitant]
     Active Substance: AZELASTINE
  8. SULFAMETHOXAZOLE-TRIMETHOPRIM [Suspect]
     Active Substance: SULFAMETHOXAZOLE\TRIMETHOPRIM
     Indication: ABSCESS
     Route: 048
     Dates: start: 20150709, end: 20150709
  9. FAMOTIDINE. [Concomitant]
     Active Substance: FAMOTIDINE
  10. ASPIRIN 81 [Concomitant]

REACTIONS (9)
  - Sinus tachycardia [None]
  - Cardiac disorder [None]
  - Epistaxis [None]
  - Insomnia [None]
  - Dyspnoea [None]
  - Decreased appetite [None]
  - Hypertension [None]
  - Fatigue [None]
  - Anxiety [None]

NARRATIVE: CASE EVENT DATE: 20150709
